FAERS Safety Report 23405692 (Version 1)
Quarter: 2024Q1

REPORT INFORMATION
  Report Type: Spontaneous
  Country: CN (occurrence: CN)
  Receive Date: 20240116
  Receipt Date: 20240116
  Transmission Date: 20240410
  Serious: Yes (Other)
  Sender: FDA-Public Use
  Company Number: CN-009507513-2401CHN006168

PATIENT
  Age: 57 Year
  Sex: Female

DRUGS (14)
  1. PEMBROLIZUMAB [Suspect]
     Active Substance: PEMBROLIZUMAB
     Indication: Lung squamous cell carcinoma stage IV
     Dosage: 200 MILLIGRAM, CYCLICAL
     Dates: start: 20210902
  2. PEMBROLIZUMAB [Suspect]
     Active Substance: PEMBROLIZUMAB
     Dosage: 200 MILLIGRAM, CYCLICAL
     Dates: start: 20210923
  3. PEMBROLIZUMAB [Suspect]
     Active Substance: PEMBROLIZUMAB
     Dosage: 200 MILLIGRAM, CYCLICAL
     Dates: start: 20211016
  4. PEMBROLIZUMAB [Suspect]
     Active Substance: PEMBROLIZUMAB
     Dosage: 200 MILLIGRAM, CYCLICAL
     Dates: start: 20211105
  5. PACLITAXEL [Suspect]
     Active Substance: PACLITAXEL
     Indication: Lung squamous cell carcinoma stage IV
     Dosage: 260 MICROGRAM PER SQ METER, CYCLICAL
     Dates: start: 2021
  6. PACLITAXEL [Suspect]
     Active Substance: PACLITAXEL
     Dosage: 260 MICROGRAM PER SQ METER, CYCLICAL
  7. PACLITAXEL [Suspect]
     Active Substance: PACLITAXEL
     Dosage: 260 MICROGRAM PER SQ METER, CYCLICAL
  8. PACLITAXEL [Suspect]
     Active Substance: PACLITAXEL
     Dosage: 260 MICROGRAM PER SQ METER, CYCLICAL
  9. CISPLATIN [Suspect]
     Active Substance: CISPLATIN
     Indication: Lung squamous cell carcinoma stage IV
     Dosage: 75 MICROGRAM PER SQ METER, CYCLICAL
     Dates: start: 2021
  10. CISPLATIN [Suspect]
     Active Substance: CISPLATIN
     Dosage: 75 MICROGRAM PER SQ METER, CYCLICAL
  11. CISPLATIN [Suspect]
     Active Substance: CISPLATIN
     Dosage: 75 MICROGRAM PER SQ METER, CYCLICAL
  12. CISPLATIN [Suspect]
     Active Substance: CISPLATIN
     Dosage: 75 MICROGRAM PER SQ METER, CYCLICAL
  13. OXYCONTIN [Concomitant]
     Active Substance: OXYCODONE HYDROCHLORIDE
     Indication: Chest pain
  14. OXYCONTIN [Concomitant]
     Active Substance: OXYCODONE HYDROCHLORIDE
     Indication: Back pain

REACTIONS (5)
  - Tumour pseudoprogression [Unknown]
  - Drug eruption [Recovered/Resolved]
  - Inappropriate schedule of product administration [Unknown]
  - Inappropriate schedule of product administration [Unknown]
  - Product use issue [Unknown]

NARRATIVE: CASE EVENT DATE: 20210901
